FAERS Safety Report 16945964 (Version 1)
Quarter: 2019Q4

REPORT INFORMATION
  Report Type: Spontaneous
  Country: US (occurrence: US)
  Receive Date: 20191021
  Receipt Date: 20191021
  Transmission Date: 20200122
  Serious: No
  Sender: FDA-Public Use
  Company Number: None

PATIENT
  Age: 60 Year
  Sex: Female
  Weight: 49.5 kg

DRUGS (1)
  1. OXYCODONE 15MG [Suspect]
     Active Substance: OXYCODONE
     Indication: PAIN
     Dosage: ?          QUANTITY:1 TABLET(S);?
     Route: 048
     Dates: start: 20191014

REACTIONS (2)
  - Drug ineffective [None]
  - Product substitution issue [None]
